FAERS Safety Report 23893926 (Version 2)
Quarter: 2024Q2

REPORT INFORMATION
  Report Type: Spontaneous
  Country: ES (occurrence: ES)
  Receive Date: 20240524
  Receipt Date: 20240527
  Transmission Date: 20240716
  Serious: Yes (Other)
  Sender: FDA-Public Use
  Company Number: None

PATIENT
  Age: 51 Year
  Sex: Male

DRUGS (2)
  1. IBUPROFEN [Suspect]
     Active Substance: IBUPROFEN
     Indication: Arthralgia
     Dosage: 600.0 MG DU
     Route: 048
     Dates: start: 20230118, end: 20230118
  2. OMEPRAZOL TARBIS [Concomitant]
     Indication: Gastrooesophageal reflux disease
     Dosage: 20.0 MG A-DE
     Route: 048
     Dates: start: 20130326

REACTIONS (3)
  - Dyspnoea [Recovered/Resolved]
  - Face oedema [Recovered/Resolved]
  - Hypersensitivity [Recovered/Resolved]

NARRATIVE: CASE EVENT DATE: 20230118
